FAERS Safety Report 20607761 (Version 1)
Quarter: 2022Q1

REPORT INFORMATION
  Report Type: Spontaneous
  Country: DE (occurrence: None)
  Receive Date: 20220317
  Receipt Date: 20220317
  Transmission Date: 20220423
  Serious: No
  Sender: FDA-Public Use
  Company Number: DE-ROCHE-3049254

PATIENT
  Sex: Male

DRUGS (2)
  1. OCREVUS [Suspect]
     Active Substance: OCRELIZUMAB
     Indication: Product used for unknown indication
     Route: 065
     Dates: start: 202103
  2. OCREVUS [Suspect]
     Active Substance: OCRELIZUMAB
     Route: 065
     Dates: start: 202109

REACTIONS (4)
  - Conjunctivitis [Not Recovered/Not Resolved]
  - Respiratory tract inflammation [Unknown]
  - Influenza like illness [Unknown]
  - Infection susceptibility increased [Unknown]

NARRATIVE: CASE EVENT DATE: 20220301
